FAERS Safety Report 19423760 (Version 3)
Quarter: 2022Q2

REPORT INFORMATION
  Report Type: Spontaneous
  Country: US (occurrence: US)
  Receive Date: 20210616
  Receipt Date: 20220504
  Transmission Date: 20220721
  Serious: No
  Sender: FDA-Public Use
  Company Number: US-PFIZER INC-2021390932

PATIENT
  Age: 62 Year
  Sex: Female
  Weight: 117.93 kg

DRUGS (6)
  1. IBRANCE [Suspect]
     Active Substance: PALBOCICLIB
     Indication: Breast cancer female
     Dosage: 125 MG, CYCLIC (3 WEEKS ON THEN 1 WEEK OFF)
     Route: 048
     Dates: start: 20210317
  2. IBRANCE [Suspect]
     Active Substance: PALBOCICLIB
     Dosage: 125 MG, CYCLIC (1 DAILY FOR 21 DAYS)
     Route: 048
     Dates: start: 20210317
  3. IBRANCE [Suspect]
     Active Substance: PALBOCICLIB
     Dosage: 125 MG, CYCLIC (3 WEEKS ON THEN 1 WEEK OFF)
     Route: 048
     Dates: start: 20210317, end: 20210729
  4. IBRANCE [Suspect]
     Active Substance: PALBOCICLIB
     Dosage: 100 MG
  5. LUTEIN [Concomitant]
     Active Substance: LUTEIN
     Dosage: UNK
  6. STOOL SOFTENER (DOCUSATE) [Concomitant]
     Active Substance: DOCUSATE
     Dosage: UNK

REACTIONS (9)
  - Body temperature decreased [Unknown]
  - Feeling cold [Unknown]
  - Oral candidiasis [Recovered/Resolved]
  - Hiatus hernia [Unknown]
  - Oropharyngeal discomfort [Unknown]
  - Laboratory test abnormal [Unknown]
  - Eating disorder [Unknown]
  - Oesophagitis [Unknown]
  - Oesophageal irritation [Recovered/Resolved]
